FAERS Safety Report 21664123 (Version 1)
Quarter: 2022Q4

REPORT INFORMATION
  Report Type: Spontaneous
  Country: FR (occurrence: FR)
  Receive Date: 20221130
  Receipt Date: 20221130
  Transmission Date: 20230112
  Serious: Yes (Death)
  Sender: FDA-Public Use
  Company Number: FR-SA-SAC20221129000057

PATIENT
  Age: 38 Year
  Sex: Female

DRUGS (1)
  1. CAPLACIZUMAB [Suspect]
     Active Substance: CAPLACIZUMAB
     Indication: Thrombotic thrombocytopenic purpura

REACTIONS (3)
  - ADAMTS13 activity decreased [Fatal]
  - Platelet count decreased [Fatal]
  - Product use issue [Unknown]

NARRATIVE: CASE EVENT DATE: 20221001
